FAERS Safety Report 10131192 (Version 2)
Quarter: 2014Q2

REPORT INFORMATION
  Report Type: Report from Study
  Country: US (occurrence: US)
  Receive Date: 20140428
  Receipt Date: 20140508
  Transmission Date: 20141212
  Serious: Yes (Death, Hospitalization)
  Sender: FDA-Public Use
  Company Number: US-JNJFOC-20140418255

PATIENT
  Age: 66 Year
  Sex: Female
  Weight: 47.7 kg

DRUGS (20)
  1. IMBRUVICA [Suspect]
     Indication: NON-HODGKIN^S LYMPHOMA
     Route: 048
     Dates: start: 20140421
  2. IMBRUVICA [Suspect]
     Indication: NON-HODGKIN^S LYMPHOMA
     Route: 048
     Dates: start: 20140227, end: 20140416
  3. METOPROLOL [Concomitant]
  4. IMDUR [Concomitant]
     Route: 048
  5. TOPROL [Concomitant]
  6. NORCO [Concomitant]
     Indication: PAIN
  7. FOLIC ACID [Concomitant]
     Route: 048
  8. SPIRIVA HANDIHALER [Concomitant]
     Route: 055
  9. ZOVIRAX [Concomitant]
     Route: 048
  10. PEPCID [Concomitant]
     Route: 048
  11. K-DUR [Concomitant]
     Route: 048
  12. CORTEF [Concomitant]
     Indication: AUTOIMMUNE HAEMOLYTIC ANAEMIA
  13. ASPIRIN [Concomitant]
     Route: 048
  14. CALTRATE [Concomitant]
     Route: 048
  15. ATIVAN [Concomitant]
     Indication: ANXIETY
     Route: 048
  16. PATANOL [Concomitant]
     Route: 048
  17. PRO-AIR [Concomitant]
     Route: 055
  18. ALBUTEROL SULFATE [Concomitant]
     Indication: DYSPNOEA
     Route: 055
  19. CENTRUM SILVER [Concomitant]
     Route: 048
  20. OCEAN MIST [Concomitant]
     Indication: NASAL CONGESTION
     Route: 045

REACTIONS (3)
  - Lung cancer metastatic [Fatal]
  - Malignant pleural effusion [Recovering/Resolving]
  - Back pain [Recovering/Resolving]
